FAERS Safety Report 16417086 (Version 2)
Quarter: 2019Q3

REPORT INFORMATION
  Report Type: Spontaneous
  Country: US (occurrence: US)
  Receive Date: 20190611
  Receipt Date: 20190807
  Transmission Date: 20191004
  Serious: Yes (Hospitalization, Other)
  Sender: FDA-Public Use
  Company Number: US-ENDO PHARMACEUTICALS INC-2019-105408

PATIENT
  Age: 54 Year
  Sex: Male
  Weight: 83.9 kg

DRUGS (8)
  1. XIAFLEX [Suspect]
     Active Substance: COLLAGENASE CLOSTRIDIUM HISTOLYTICUM
     Dosage: 0.58MG, UNKNOWN (CYCLE 1, INJECTION 1)
     Route: 026
     Dates: start: 20190319
  2. SILDENAFIL. [Concomitant]
     Active Substance: SILDENAFIL
     Indication: ERECTILE DYSFUNCTION
     Dosage: 20 MG, DAILY (2 TO 5 TABS, 30 MIN PRIOR TO INTERCOURSE PRN)
     Route: 048
     Dates: start: 20190101
  3. FISH OIL [Concomitant]
     Active Substance: FISH OIL
     Indication: PRODUCT USED FOR UNKNOWN INDICATION
     Dosage: 1 DAILY
     Route: 048
  4. XIAFLEX [Suspect]
     Active Substance: COLLAGENASE CLOSTRIDIUM HISTOLYTICUM
     Indication: PEYRONIE^S DISEASE
     Dosage: 0.58MG, UNKNOWN (CYCLE 2, INJECTION 2)
     Route: 026
     Dates: start: 20190501
  5. XIAFLEX [Suspect]
     Active Substance: COLLAGENASE CLOSTRIDIUM HISTOLYTICUM
     Dosage: 0.58MG, UNKNOWN (CYCLE 2, INJECTION 1)
     Route: 026
     Dates: start: 20190429
  6. XIAFLEX [Suspect]
     Active Substance: COLLAGENASE CLOSTRIDIUM HISTOLYTICUM
     Dosage: 0.58MG, UNKNOWN (CYCLE 1, INJECTION 2)
     Route: 026
     Dates: start: 20190321
  7. CIALIS [Concomitant]
     Active Substance: TADALAFIL
     Indication: ERECTILE DYSFUNCTION
     Dosage: 5 MG, DAILY
     Route: 048
  8. MULTI VITAMINS + MINERALS [Concomitant]
     Active Substance: MINERALS\VITAMINS
     Indication: PRODUCT USED FOR UNKNOWN INDICATION
     Dosage: 1, DAILY
     Route: 048

REACTIONS (4)
  - Fracture of penis [Recovering/Resolving]
  - Corpora cavernosa surgery [Recovering/Resolving]
  - Neck pain [Recovered/Resolved]
  - Post procedural infection [Recovering/Resolving]

NARRATIVE: CASE EVENT DATE: 201903
